FAERS Safety Report 17668092 (Version 6)
Quarter: 2020Q3

REPORT INFORMATION
  Report Type: Spontaneous
  Country: US (occurrence: US)
  Receive Date: 20200414
  Receipt Date: 20200721
  Transmission Date: 20201102
  Serious: Yes (Other)
  Sender: FDA-Public Use
  Company Number: US-BEH-2020115573

PATIENT
  Age: 41 Year
  Sex: Female

DRUGS (5)
  1. HAEGARDA [Suspect]
     Active Substance: HUMAN C1-ESTERASE INHIBITOR
     Dosage: 6000 IU, EVERY 3 DAYS
     Route: 058
     Dates: start: 201910
  2. HAEGARDA [Suspect]
     Active Substance: HUMAN C1-ESTERASE INHIBITOR
     Indication: PROPHYLAXIS
     Dosage: 5550 INTERNATIONAL UNIT, TOT
     Route: 058
     Dates: start: 20200512, end: 20200512
  3. HAEGARDA [Suspect]
     Active Substance: HUMAN C1-ESTERASE INHIBITOR
     Dosage: 6000 IU, EVERY 3 DAYS
     Route: 058
     Dates: start: 20191002
  4. HAEGARDA [Suspect]
     Active Substance: HUMAN C1-ESTERASE INHIBITOR
     Indication: HEREDITARY ANGIOEDEMA
     Dosage: 5550 INTERNATIONAL UNIT, BIW
     Route: 058
     Dates: start: 20191002
  5. HAEGARDA [Suspect]
     Active Substance: HUMAN C1-ESTERASE INHIBITOR
     Dosage: 5500 INTERNATIONAL UNIT, TOT
     Route: 058
     Dates: start: 202005, end: 202005

REACTIONS (13)
  - Device issue [Unknown]
  - Hereditary angioedema [Unknown]
  - Product preparation issue [Unknown]
  - Therapy cessation [Unknown]
  - Hereditary angioedema [Unknown]
  - Hereditary angioedema [Unknown]
  - Product sterility lacking [Unknown]
  - No adverse event [Unknown]
  - Hereditary angioedema [Recovered/Resolved]
  - Product dose omission issue [Unknown]
  - Hereditary angioedema [Recovered/Resolved]
  - Expired device used [Unknown]
  - Device leakage [Unknown]

NARRATIVE: CASE EVENT DATE: 202003
